FAERS Safety Report 12874283 (Version 2)
Quarter: 2016Q4

REPORT INFORMATION
  Report Type: Report from Study
  Country: None (occurrence: US)
  Receive Date: 20161021
  Receipt Date: 20161213
  Transmission Date: 20170207
  Serious: Yes (Hospitalization, Other)
  Sender: FDA-Public Use
  Company Number: US-ABBVIE-16K-163-1758399-00

PATIENT
  Age: 51 Year
  Sex: Female
  Weight: 69.92 kg

DRUGS (9)
  1. HUMIRA [Suspect]
     Active Substance: ADALIMUMAB
     Indication: PSORIASIS
     Route: 058
     Dates: start: 201408, end: 201610
  2. ZOLOFT [Concomitant]
     Active Substance: SERTRALINE HYDROCHLORIDE
     Indication: DEPRESSION
  3. NITROGLYCERIN. [Concomitant]
     Active Substance: NITROGLYCERIN
     Indication: PROPHYLAXIS
  4. METFORMIN [Suspect]
     Active Substance: METFORMIN HYDROCHLORIDE
     Indication: TYPE 2 DIABETES MELLITUS
     Route: 065
     Dates: start: 201610
  5. COUMADIN [Concomitant]
     Active Substance: WARFARIN SODIUM
     Indication: ANTIPHOSPHOLIPID SYNDROME
  6. NITROGLYCERIN. [Concomitant]
     Active Substance: NITROGLYCERIN
     Indication: CHEST PAIN
  7. TRESIBA [Concomitant]
     Active Substance: INSULIN DEGLUDEC
     Indication: TYPE 2 DIABETES MELLITUS
  8. LYRICA [Concomitant]
     Active Substance: PREGABALIN
     Indication: NEURALGIA
  9. HUMIRA [Suspect]
     Active Substance: ADALIMUMAB
     Route: 058
     Dates: start: 201611

REACTIONS (7)
  - Allergic oedema [Recovering/Resolving]
  - Pain of skin [Recovering/Resolving]
  - Malaise [Unknown]
  - Dermatitis allergic [Recovering/Resolving]
  - Type 2 diabetes mellitus [Not Recovered/Not Resolved]
  - Erythema [Recovering/Resolving]
  - Myocardial infarction [Recovered/Resolved]

NARRATIVE: CASE EVENT DATE: 201609
